FAERS Safety Report 10377663 (Version 1)
Quarter: 2014Q1

REPORT INFORMATION
  Report Type: Spontaneous
  Country: US (occurrence: None)
  Receive Date: 20140306
  Receipt Date: 20140306
  Transmission Date: 20141002
  Serious: Yes (Other)
  Sender: FDA-Public Use
  Company Number: 163-21880-13031829

PATIENT
  Age: 68 Year
  Sex: Male
  Weight: 72.58 kg

DRUGS (3)
  1. REVLIMID (LENALIDOMIDE) (10 MILLIGRAM, CAPSULES) [Suspect]
     Indication: PLASMA CELL MYELOMA
     Dosage: 10 MG, 21 IN 28 D, PO
     Route: 048
     Dates: start: 201003, end: 201212
  2. BORTEZOMIB (BORTEZOMIB) (UNKNOWN) [Concomitant]
  3. VALACYCLOVIR (VALACICLOVIR HYDROCHLORIDE) (UNKNOWN) [Concomitant]

REACTIONS (3)
  - Arthralgia [None]
  - Large intestinal haemorrhage [None]
  - Muscle spasms [None]
